FAERS Safety Report 9189735 (Version 1)
Quarter: 2013Q1

REPORT INFORMATION
  Report Type: Spontaneous
  Country: US (occurrence: None)
  Receive Date: 20130322
  Receipt Date: 20130322
  Transmission Date: 20140127
  Serious: Yes (Other)
  Sender: FDA-Public Use
  Company Number: JPI-P-030593

PATIENT
  Age: 58 Year
  Sex: Female
  Weight: 44.45 kg

DRUGS (8)
  1. XYREM (500 MILLIGRAM/MILLILITERS, SOLUTION) (SODIUM OXYBATE) [Suspect]
     Indication: HYPERSOMNIA
     Route: 048
     Dates: start: 200704
  2. ESCITALOPRAM OXALATE [Concomitant]
  3. ARMODAFINIL [Concomitant]
  4. MONTELUKAST SODIUM [Concomitant]
  5. PREGABALIN [Concomitant]
  6. LUBIPROSTONE [Concomitant]
  7. DENOSUMAB [Concomitant]
  8. LOVASTATIN [Concomitant]

REACTIONS (4)
  - Periorbital contusion [None]
  - Concussion [None]
  - Fall [None]
  - Somnambulism [None]
